FAERS Safety Report 17876817 (Version 5)
Quarter: 2020Q4

REPORT INFORMATION
  Report Type: Spontaneous
  Country: US (occurrence: US)
  Receive Date: 20200609
  Receipt Date: 20201026
  Transmission Date: 20210113
  Serious: Yes (Hospitalization)
  Sender: FDA-Public Use
  Company Number: US-SA-2020SA146092

PATIENT

DRUGS (2)
  1. KEVZARA [Suspect]
     Active Substance: SARILUMAB
     Dosage: 200 MG, QOW
     Route: 058
     Dates: start: 2020
  2. KEVZARA [Suspect]
     Active Substance: SARILUMAB
     Indication: PRODUCT USED FOR UNKNOWN INDICATION
     Dosage: 200 MG, QOW
     Route: 058
     Dates: start: 202004

REACTIONS (5)
  - Injection site mass [Unknown]
  - Wrong technique in device usage process [Unknown]
  - Injection site pain [Recovered/Resolved]
  - Injection site urticaria [Unknown]
  - Fall [Unknown]

NARRATIVE: CASE EVENT DATE: 2020
